FAERS Safety Report 6388434-X (Version None)
Quarter: 2009Q4

REPORT INFORMATION
  Report Type: 
  Country: None (occurrence: None)
  Receive Date: 20091001
  Receipt Date: 20091001
  Transmission Date: 20100525
  Serious: Yes (Other)
  Sender: FDA-Public Use
  Company Number: None

PATIENT
  Age: 57 Year
  Sex: Female
  Weight: 72.5755 kg

DRUGS (10)
  1. AMITRIPTYLINE HCL [Suspect]
     Indication: GASTROINTESTINAL HYPERMOTILITY
     Dosage: 25 MG. ONE BY MOUTH AT BE PO
     Route: 048
     Dates: start: 20090829, end: 20090925
  2. RAMIPRIL [Concomitant]
  3. SIMVASTATIN [Concomitant]
  4. SYMBICORT [Concomitant]
  5. ADVAIR DISKUS 100/50 [Concomitant]
  6. NASACORT AQ [Concomitant]
  7. ALBUTEROL [Concomitant]
  8. LORATADINE [Concomitant]
  9. OMEPRAZOLE [Concomitant]
  10. ACETAMINOPHEN [Concomitant]

REACTIONS (12)
  - AGGRESSION [None]
  - AGITATION [None]
  - ANGER [None]
  - ANXIETY [None]
  - DRUG WITHDRAWAL SYNDROME [None]
  - INSOMNIA [None]
  - IRRITABILITY [None]
  - LOGORRHOEA [None]
  - MANIA [None]
  - PANIC ATTACK [None]
  - PSYCHOMOTOR HYPERACTIVITY [None]
  - RESTLESSNESS [None]
